FAERS Safety Report 19963541 (Version 1)
Quarter: 2021Q4

REPORT INFORMATION
  Report Type: Other
  Country: ES (occurrence: ES)
  Receive Date: 20211018
  Receipt Date: 20211018
  Transmission Date: 20220303
  Serious: Yes (Other)
  Sender: FDA-Public Use
  Company Number: ES-ROCHE-2935121

PATIENT

DRUGS (5)
  1. RITUXIMAB [Suspect]
     Active Substance: RITUXIMAB
     Indication: Diffuse large B-cell lymphoma
     Dosage: DAY 1
     Route: 041
  2. IBRUTINIB [Suspect]
     Active Substance: IBRUTINIB
     Indication: Diffuse large B-cell lymphoma
     Route: 048
  3. GEMCITABINE [Suspect]
     Active Substance: GEMCITABINE
     Indication: Diffuse large B-cell lymphoma
     Dosage: (30-MINUTE INFUSION) ON DAY 1 OR 2
     Route: 042
  4. OXALIPLATIN [Suspect]
     Active Substance: OXALIPLATIN
     Indication: Diffuse large B-cell lymphoma
     Dosage: (3-HOUR INFUSION) ON DAY 1 OR 2, AFTER GEMCITABINE INFUSION
     Route: 042
  5. DEXAMETHASONE [Suspect]
     Active Substance: DEXAMETHASONE
     Indication: Diffuse large B-cell lymphoma
     Dosage: ON DAY 1-4
     Route: 065

REACTIONS (8)
  - Aspergillus infection [Unknown]
  - Pneumonia [Unknown]
  - Thrombocytopenia [Unknown]
  - Neutropenia [Unknown]
  - Anaemia [Unknown]
  - Lymphocyte count decreased [Unknown]
  - Diarrhoea [Unknown]
  - Fatigue [Unknown]
